FAERS Safety Report 12089360 (Version 1)
Quarter: 2016Q1

REPORT INFORMATION
  Report Type: Spontaneous
  Country: DK (occurrence: DK)
  Receive Date: 20160218
  Receipt Date: 20160218
  Transmission Date: 20160526
  Serious: Yes (Life-Threatening, Hospitalization)
  Sender: FDA-Public Use
  Company Number: DK-ACTAVIS-2016-02672

PATIENT
  Age: 82 Year
  Sex: Male
  Weight: 75 kg

DRUGS (2)
  1. QUETIAPIN ACTAVIS [Suspect]
     Active Substance: QUETIAPINE
     Indication: HALLUCINATION, AUDITORY
     Dosage: 50 MG, QHS (DOSIS: 2 TABLETTER TIL NATTEN - DOSAGE: 2 TABLETS AT NIGHT)
     Route: 048
  2. ONBREZ BREEZHALER [Concomitant]
     Active Substance: INDACATEROL
     Indication: CHRONIC OBSTRUCTIVE PULMONARY DISEASE
     Dosage: UNK
     Route: 065
     Dates: start: 20140630

REACTIONS (2)
  - Coronary arterial stent insertion [Recovered/Resolved]
  - Acute myocardial infarction [Recovered/Resolved with Sequelae]

NARRATIVE: CASE EVENT DATE: 20151216
